FAERS Safety Report 9190738 (Version 2)
Quarter: 2013Q2

REPORT INFORMATION
  Report Type: Spontaneous
  Country: IL (occurrence: IL)
  Receive Date: 20130326
  Receipt Date: 20130402
  Transmission Date: 20140414
  Serious: Yes (Other)
  Sender: FDA-Public Use
  Company Number: IL-ASTRAZENECA-2013SE17933

PATIENT
  Age: 55 Year
  Sex: Male

DRUGS (13)
  1. BRILINTA [Suspect]
     Indication: ACUTE MYOCARDIAL INFARCTION
     Route: 048
  2. SOL OXYCOD [Concomitant]
     Dosage: 5CC
  3. AEROVENT [Concomitant]
     Dosage: 1.5CC FOUR TIMES
     Route: 055
  4. TARGIN [Concomitant]
  5. SLOW K [Concomitant]
     Dosage: 1.2 TWICE
  6. LOSEC [Concomitant]
  7. LIPITOR [Concomitant]
  8. FUSID [Concomitant]
     Dosage: 40 TWICE
  9. CARDILOC [Concomitant]
  10. ASPIRIN [Concomitant]
  11. TRITACE [Concomitant]
  12. ALDACTONE [Concomitant]
  13. AUGMENTIN [Concomitant]

REACTIONS (1)
  - Thrombosis in device [Unknown]
